FAERS Safety Report 12084351 (Version 5)
Quarter: 2016Q3

REPORT INFORMATION
  Report Type: Spontaneous
  Country: US (occurrence: US)
  Receive Date: 20160217
  Receipt Date: 20160822
  Transmission Date: 20161109
  Serious: Yes (Hospitalization, Other)
  Sender: FDA-Public Use
  Company Number: US-GLAXOSMITHKLINE-US2016018830

PATIENT
  Age: 70 Year
  Sex: Female

DRUGS (8)
  1. OXYGEN. [Concomitant]
     Active Substance: OXYGEN
  2. VENTOLIN [Suspect]
     Active Substance: ALBUTEROL SULFATE
     Indication: DYSPNOEA
     Dosage: UNK
     Route: 055
     Dates: start: 2006
  3. ALBUTEROL + IPRATROPIUM [Concomitant]
     Route: 055
  4. XANAX [Concomitant]
     Active Substance: ALPRAZOLAM
  5. VENTOLIN [Suspect]
     Active Substance: ALBUTEROL SULFATE
     Dosage: 2 PUFF(S), PRN
     Route: 055
  6. COMBIVENT [Concomitant]
     Active Substance: ALBUTEROL SULFATE\IPRATROPIUM BROMIDE
  7. STIOLTO RESPIMAT [Concomitant]
     Active Substance: OLODATEROL HYDROCHLORIDE\TIOTROPIUM BROMIDE MONOHYDRATE
  8. VENTOLIN [Suspect]
     Active Substance: ALBUTEROL SULFATE
     Dosage: 2 PUFF(S), PRN
     Route: 055

REACTIONS (17)
  - Dyspnoea [Not Recovered/Not Resolved]
  - Delirium [Recovered/Resolved]
  - Clostridium difficile infection [Recovered/Resolved]
  - Product cleaning inadequate [Unknown]
  - Product quality issue [Unknown]
  - Underdose [Unknown]
  - Dehydration [Recovered/Resolved]
  - Panic reaction [Not Recovered/Not Resolved]
  - Asthma [Unknown]
  - Oxygen saturation decreased [Unknown]
  - Radiotherapy [Recovered/Resolved]
  - Chemotherapy [Recovered/Resolved]
  - Anal cancer [Recovered/Resolved]
  - Staphylococcal infection [Recovered/Resolved]
  - Ill-defined disorder [Recovered/Resolved]
  - Drug ineffective [Unknown]
  - Device use error [Unknown]

NARRATIVE: CASE EVENT DATE: 2012
